FAERS Safety Report 5467650-5 (Version None)
Quarter: 2007Q3

REPORT INFORMATION
  Report Type: 
  Country: None (occurrence: None)
  Receive Date: 20070913
  Receipt Date: 20070831
  Transmission Date: 20080115
  Serious: Yes (Hospitalization)
  Sender: FDA-Public Use
  Company Number: WSDF_00673

PATIENT
  Age: 22 Month
  Sex: Female
  Weight: 12 kg

DRUGS (6)
  1. WINRHO SDF [Suspect]
     Indication: IDIOPATHIC THROMBOCYTOPENIC PURPURA
     Dosage: 900 MCG ONCE IV
     Route: 042
     Dates: start: 20070815, end: 20070815
  2. BENADRYL [Concomitant]
  3. ZOFRAN [Concomitant]
  4. DECADRON [Concomitant]
  5. D5 ONE HALF NORMAL SALINE [Concomitant]
  6. POTASSIUM CHLORIDE [Concomitant]

REACTIONS (5)
  - BLOOD GLUCOSE INCREASED [None]
  - BLOOD PH INCREASED [None]
  - INTRAVASCULAR HAEMOLYSIS [None]
  - TONGUE BLISTERING [None]
  - WHITE BLOOD CELL COUNT INCREASED [None]
